FAERS Safety Report 16071353 (Version 2)
Quarter: 2019Q2

REPORT INFORMATION
  Report Type: Spontaneous
  Country: US (occurrence: US)
  Receive Date: 20190314
  Receipt Date: 20190409
  Transmission Date: 20190711
  Serious: Yes (Hospitalization)
  Sender: FDA-Public Use
  Company Number: US-PFIZER INC-2018424104

PATIENT
  Age: 69 Year
  Sex: Female
  Weight: 61 kg

DRUGS (1)
  1. IBRANCE [Suspect]
     Active Substance: PALBOCICLIB
     Indication: BREAST CANCER METASTATIC
     Dosage: 125 MG, CYCLIC, [DAYS 1-21 EVERYDAY 28 DAYS] [D1-D21 Q28 D]
     Route: 048
     Dates: start: 20180404

REACTIONS (2)
  - Intentional product misuse [Unknown]
  - Amnesia [Unknown]

NARRATIVE: CASE EVENT DATE: 2018
